FAERS Safety Report 9745696 (Version 2)
Quarter: 2013Q4

REPORT INFORMATION
  Report Type: Spontaneous
  Country: CH (occurrence: CH)
  Receive Date: 20131211
  Receipt Date: 20131218
  Transmission Date: 20140711
  Serious: Yes (Other)
  Sender: FDA-Public Use
  Company Number: CH-JNJFOC-20131205341

PATIENT
  Age: 48 Year
  Sex: Female
  Weight: 94.2 kg

DRUGS (8)
  1. SIMPONI [Suspect]
     Indication: SPONDYLITIS
     Route: 058
     Dates: start: 201109, end: 201212
  2. SIMPONI [Suspect]
     Indication: RHEUMATOID ARTHRITIS
     Route: 058
     Dates: start: 201109, end: 201212
  3. REMICADE [Suspect]
     Indication: RHEUMATOID ARTHRITIS
     Route: 042
     Dates: start: 201011, end: 201108
  4. HUMIRA [Suspect]
     Indication: RHEUMATOID ARTHRITIS
     Route: 058
     Dates: start: 201007, end: 201011
  5. APROVEL [Concomitant]
     Route: 048
  6. METHOTREXATE [Concomitant]
     Indication: RHEUMATOID ARTHRITIS
     Route: 065
  7. PANTOZOL [Concomitant]
     Route: 065
  8. VITAMINE E [Concomitant]
     Route: 065

REACTIONS (4)
  - Epilepsy [Unknown]
  - Multiple sclerosis [Not Recovered/Not Resolved]
  - Gastroenteritis [Unknown]
  - Hepatic enzyme increased [Recovered/Resolved]
